FAERS Safety Report 10177813 (Version 1)
Quarter: 2014Q2

REPORT INFORMATION
  Report Type: Spontaneous
  Country: US (occurrence: US)
  Receive Date: 20140516
  Receipt Date: 20140516
  Transmission Date: 20141212
  Serious: No
  Sender: FDA-Public Use
  Company Number: US-SA-2013SA104286

PATIENT
  Age: 70 Year
  Sex: Female

DRUGS (4)
  1. APIDRA SOLOSTAR [Suspect]
     Indication: TYPE 2 DIABETES MELLITUS
     Dosage: PRODUCT STARTED COUPLE OF MONTHS AGO. DOSE : SLIDING SCALE.
     Route: 058
  2. LANTUS SOLOSTAR [Suspect]
     Indication: TYPE 2 DIABETES MELLITUS
     Dosage: PRODUCT STARTED ONE YEAR AGO. DOSE:30 UNIT(S)
     Route: 051
  3. SOLOSTAR [Concomitant]
     Dosage: PRODUCT STARTED COUPLE OF MONTHS AGO.
  4. SOLOSTAR [Concomitant]
     Dosage: PRODUCT STARTED ONE YEAR AGO.

REACTIONS (2)
  - Blood glucose increased [Unknown]
  - Incorrect product storage [Unknown]
